FAERS Safety Report 16121282 (Version 1)
Quarter: 2019Q1

REPORT INFORMATION
  Report Type: Spontaneous
  Country: GR (occurrence: GR)
  Receive Date: 20190327
  Receipt Date: 20190327
  Transmission Date: 20190418
  Serious: Yes (Other)
  Sender: FDA-Public Use
  Company Number: GR-ACCORD-114417

PATIENT
  Sex: Female

DRUGS (3)
  1. METHOTREXATE. [Suspect]
     Active Substance: METHOTREXATE
     Indication: ARTERITIS
     Dosage: 25 MG, QW
  2. AZATHIOPRINE. [Concomitant]
     Active Substance: AZATHIOPRINE
  3. METHYLPREDNISOLONE. [Suspect]
     Active Substance: METHYLPREDNISOLONE
     Indication: TEMPORAL ARTERITIS
     Dosage: 4 MG, DAILY

REACTIONS (3)
  - Diabetes mellitus [Unknown]
  - Angiopathy [Unknown]
  - Cataract [Unknown]
